FAERS Safety Report 16336559 (Version 1)
Quarter: 2019Q2

REPORT INFORMATION
  Report Type: Spontaneous
  Country: US (occurrence: US)
  Receive Date: 20190521
  Receipt Date: 20190521
  Transmission Date: 20190711
  Serious: No
  Sender: FDA-Public Use
  Company Number: US-BAYER-2019-099294

PATIENT
  Age: 58 Year
  Sex: Female

DRUGS (1)
  1. BETASERON [Suspect]
     Active Substance: INTERFERON BETA-1B
     Indication: MULTIPLE SCLEROSIS
     Dosage: 0.3 MG; 1ML/250MCG
     Route: 058
     Dates: start: 2017

REACTIONS (2)
  - Drug hypersensitivity [None]
  - Urinary tract infection [None]

NARRATIVE: CASE EVENT DATE: 201901
